FAERS Safety Report 8887319 (Version 1)
Quarter: 2012Q4

REPORT INFORMATION
  Report Type: 
  Country: US (occurrence: US)
  Receive Date: 20121101
  Receipt Date: 20121101
  Transmission Date: 20130627
  Serious: Yes (Other)
  Sender: FDA-Public Use
  Company Number: US-PFIZER INC-2012271991

PATIENT
  Age: 67 Year
  Sex: Female
  Weight: 100.2 kg

DRUGS (10)
  1. CELEBREX [Suspect]
     Indication: ARTHRITIS
     Dosage: UNK
     Dates: end: 2011
  2. BYETTA [Concomitant]
     Indication: DIABETES
     Dosage: 10 mg, 2x/day
  3. FLEXERIL [Concomitant]
     Dosage: 10 mg, 3x/day
  4. ATENOLOL [Concomitant]
     Dosage: 25 mg, 1x/day
  5. SYNTHROID [Concomitant]
     Indication: THYROID DISORDER
     Dosage: 0.025 mg, 1x/day
  6. LISINOPRIL [Concomitant]
     Indication: BLOOD PRESSURE HIGH
     Dosage: 20 mg, 2x/day
  7. AMARYL [Concomitant]
     Dosage: 4 mg, 1x/day
  8. DYAZIDE [Concomitant]
     Dosage: UNK
  9. LORTAB [Concomitant]
     Dosage: UNK
  10. ACIPHEX [Concomitant]
     Dosage: 20 mg, UNK

REACTIONS (1)
  - Renal disorder [Unknown]
